FAERS Safety Report 9332028 (Version 1)
Quarter: 2013Q2

REPORT INFORMATION
  Report Type: Spontaneous
  Country: DE (occurrence: None)
  Receive Date: 20130603
  Receipt Date: 20130603
  Transmission Date: 20140414
  Serious: Yes (Other)
  Sender: FDA-Public Use
  Company Number: GER/GER/13/0029682

PATIENT
  Age: 31 Year
  Sex: Female
  Weight: 63 kg

DRUGS (2)
  1. CITALOPRAM (CITALOPRAM) [Suspect]
     Indication: ANXIETY DISORDER
     Dosage: 1 D
     Route: 048
     Dates: start: 20120428, end: 20130204
  2. FOLSAEURE (FOLIC ACID) [Concomitant]

REACTIONS (2)
  - Maternal exposure during pregnancy [None]
  - Meconium in amniotic fluid [None]
